FAERS Safety Report 11231390 (Version 1)
Quarter: 2015Q2

REPORT INFORMATION
  Report Type: Spontaneous
  Country: US (occurrence: None)
  Receive Date: 20150629
  Receipt Date: 20150629
  Transmission Date: 20150821
  Serious: Yes (Other)
  Sender: FDA-Public Use
  Company Number: None

PATIENT
  Age: 67 Year
  Sex: Female
  Weight: 57.15 kg

DRUGS (11)
  1. VITAMIN B6 [Concomitant]
     Active Substance: PYRIDOXINE HYDROCHLORIDE
  2. VITAMIN C [Concomitant]
     Active Substance: ASCORBIC ACID
  3. COMPOUNDED ESTROGEN AND PROGESTERONE [Concomitant]
  4. MULTIPLE VITAMIN [Concomitant]
     Active Substance: VITAMINS
  5. VITAMIN D3 [Concomitant]
     Active Substance: CHOLECALCIFEROL
  6. ENOXAPARIN SODIUM 60 MG/0.6 ML [Suspect]
     Active Substance: ENOXAPARIN SODIUM
     Indication: THROMBOSIS
     Dosage: ONE SYRINGE Q 12 HRS, GIVEN INTO/UNDER THE SKIN
     Route: 058
  7. MAXALT [Concomitant]
     Active Substance: RIZATRIPTAN BENZOATE
  8. WARFARIN [Concomitant]
     Active Substance: WARFARIN
  9. WELLBUTRIN [Concomitant]
     Active Substance: BUPROPION HYDROCHLORIDE
  10. VITAMIN B12 [Concomitant]
     Active Substance: CYANOCOBALAMIN
  11. CALCIUM [Concomitant]
     Active Substance: CALCIUM

REACTIONS (15)
  - Fall [None]
  - Contusion [None]
  - Decreased appetite [None]
  - Confusional state [None]
  - Nausea [None]
  - Fatigue [None]
  - Syncope [None]
  - Head injury [None]
  - Mass [None]
  - Limb injury [None]
  - Malaise [None]
  - Drug hypersensitivity [None]
  - Reaction to preservatives [None]
  - Mental impairment [None]
  - Irritability [None]

NARRATIVE: CASE EVENT DATE: 20150411
